FAERS Safety Report 15172253 (Version 1)
Quarter: 2018Q3

REPORT INFORMATION
  Report Type: Spontaneous
  Country: US (occurrence: US)
  Receive Date: 20180622
  Receipt Date: 20180622
  Transmission Date: 20181010
  Serious: No
  Sender: FDA-Public Use
  Company Number: None

PATIENT
  Age: 29 Year
  Sex: Female
  Weight: 54 kg

DRUGS (2)
  1. NORETH/ETHIN CHW FE 1/20 [Suspect]
     Active Substance: ETHINYL ESTRADIOL\FERROUS FUMARATE\NORETHINDRONE ACETATE
     Indication: CONTRACEPTION
     Dosage: ?          QUANTITY:1 TABLET(S);?
     Route: 048
     Dates: start: 20170616, end: 20180114
  2. MINASTRIN 24 CHW FE [Concomitant]

REACTIONS (13)
  - Product substitution issue [None]
  - Breast swelling [None]
  - Disturbance in attention [None]
  - Chest pain [None]
  - Insomnia [None]
  - Mood swings [None]
  - Tenderness [None]
  - Amnesia [None]
  - Anger [None]
  - Lethargy [None]
  - Weight increased [None]
  - Suicidal ideation [None]
  - Thinking abnormal [None]

NARRATIVE: CASE EVENT DATE: 20171206
